FAERS Safety Report 5509511-9 (Version None)
Quarter: 2007Q4

REPORT INFORMATION
  Report Type: 
  Country: None (occurrence: None)
  Receive Date: 20071029
  Receipt Date: 20070820
  Transmission Date: 20080405
  Serious: No
  Sender: FDA-Public Use
  Company Number: 013062

PATIENT
  Age: 45 Year
  Sex: Female

DRUGS (5)
  1. PRIALT [Suspect]
     Indication: PAIN
     Dosage: 0.05 UG, ONCE/HOUR, INTRATHECAL ; 0.058 UG, ONCE/HOUR, INTRATHECAL
     Route: 037
     Dates: start: 20070518
  2. PRIALT [Suspect]
     Indication: PAIN
     Dosage: 0.05 UG, ONCE/HOUR, INTRATHECAL ; 0.058 UG, ONCE/HOUR, INTRATHECAL
     Route: 037
     Dates: start: 20070727
  3. FENTANYL [Concomitant]
  4. BUPIVACAINE [Concomitant]
  5. CLONIDINE [Concomitant]

REACTIONS (5)
  - ADVERSE EVENT [None]
  - AMNESIA [None]
  - MUSCULOSKELETAL STIFFNESS [None]
  - MYALGIA [None]
  - SOMNAMBULISM [None]
